FAERS Safety Report 7924617-2 (Version None)
Quarter: 2011Q4

REPORT INFORMATION
  Report Type: 
  Country: None (occurrence: None)
  Receive Date: 20111117
  Receipt Date: 20110324
  Transmission Date: 20120403
  Serious: No
  Sender: FDA-Public Use
  Company Number: US-AMGEN-USASP2010002877

PATIENT
  Age: 57 Year
  Sex: Female

DRUGS (3)
  1. ENBREL [Suspect]
     Indication: RHEUMATOID ARTHRITIS
     Dosage: 25 MG, 2 TIMES/WK
     Dates: start: 19981201
  2. METHOTREXATE [Concomitant]
     Dosage: 1 MG, QWK
     Dates: start: 19980101
  3. ENBREL [Suspect]
     Dates: start: 19981201

REACTIONS (2)
  - RHEUMATOID ARTHRITIS [None]
  - INJECTION SITE PAIN [None]
